FAERS Safety Report 8119069-6 (Version None)
Quarter: 2012Q1

REPORT INFORMATION
  Report Type: 
  Country: None (occurrence: None)
  Receive Date: 20120207
  Receipt Date: 20120130
  Transmission Date: 20120608
  Serious: Yes (Death)
  Sender: FDA-Public Use
  Company Number: FR-ROCHE-1036363

PATIENT
  Sex: Female

DRUGS (10)
  1. RANIBIZUMAB [Suspect]
     Dates: start: 20091015
  2. RANIBIZUMAB [Suspect]
     Dates: start: 20100114
  3. RANIBIZUMAB [Suspect]
     Dates: start: 20101216
  4. RANIBIZUMAB [Suspect]
     Indication: AGE-RELATED MACULAR DEGENERATION
     Route: 050
     Dates: start: 20070928
  5. RANIBIZUMAB [Suspect]
     Dates: start: 20090625
  6. RANIBIZUMAB [Suspect]
     Dates: start: 20090926
  7. RANIBIZUMAB [Suspect]
     Dates: start: 20100422
  8. RANIBIZUMAB [Suspect]
     Dates: start: 20090409
  9. RANIBIZUMAB [Suspect]
     Dates: start: 20100930
  10. RANIBIZUMAB [Suspect]
     Dates: start: 20100708

REACTIONS (2)
  - VISUAL ACUITY REDUCED [None]
  - DEATH [None]
